FAERS Safety Report 20795253 (Version 3)
Quarter: 2022Q2

REPORT INFORMATION
  Report Type: Spontaneous
  Country: US (occurrence: US)
  Receive Date: 20220506
  Receipt Date: 20220624
  Transmission Date: 20220721
  Serious: No
  Sender: FDA-Public Use
  Company Number: US-PFIZER INC-202200623052

PATIENT
  Sex: Female

DRUGS (1)
  1. PREMARIN [Suspect]
     Active Substance: ESTROGENS, CONJUGATED
     Indication: Atrophic vulvovaginitis
     Dosage: 0.5 GRAMS; 2-3 TIMES A WEEK; APPLY VAGINALLY
     Route: 067

REACTIONS (3)
  - Wrong technique in product usage process [Unknown]
  - Product cleaning inadequate [Unknown]
  - Off label use [Unknown]
